FAERS Safety Report 13739236 (Version 1)
Quarter: 2017Q3

REPORT INFORMATION
  Report Type: Spontaneous
  Country: US (occurrence: US)
  Receive Date: 20170710
  Receipt Date: 20170710
  Transmission Date: 20171127
  Serious: Yes (Other)
  Sender: FDA-Public Use
  Company Number: US-VALIDUS PHARMACEUTICALS LLC-US-2017VAL001017

PATIENT
  Sex: Female

DRUGS (2)
  1. ROCALTROL [Suspect]
     Active Substance: CALCITRIOL
     Dosage: 16 ?G, UNK
     Route: 065
  2. ROCALTROL [Suspect]
     Active Substance: CALCITRIOL
     Indication: OSTEOPETROSIS
     Dosage: 2 ?G, UNK
     Route: 065

REACTIONS (1)
  - Diarrhoea [Recovered/Resolved]
